FAERS Safety Report 21176770 (Version 1)
Quarter: 2022Q3

REPORT INFORMATION
  Report Type: Spontaneous
  Country: JP (occurrence: JP)
  Receive Date: 20220805
  Receipt Date: 20220805
  Transmission Date: 20221027
  Serious: Yes (Other)
  Sender: FDA-Public Use
  Company Number: JP-TEVA-2022-JP-2061197

PATIENT
  Age: 27 Year
  Sex: Female

DRUGS (3)
  1. HYDROCORTISONE [Suspect]
     Active Substance: HYDROCORTISONE
     Indication: Hormone replacement therapy
     Dosage: THERAPY CONTINUED DURING THE PRE-GESTATIONAL PERIOD;
     Route: 065
  2. HYDROCORTISONE [Suspect]
     Active Substance: HYDROCORTISONE
     Indication: Hormone replacement therapy
     Dosage: FURTHER, DOSE INCREASED BY 1.5 TIMES IN THE THIRD TRIMESTER [EXACT DOSE NOT STATED];
     Route: 065
  3. HYDROCORTISONE [Suspect]
     Active Substance: HYDROCORTISONE
     Indication: Hormone replacement therapy
     Dosage: GIVEN AS A STRESS DOSE AT 38 WEEKS OF GESTATION
     Route: 042

REACTIONS (3)
  - Caesarean section [Unknown]
  - Maternal exposure during pregnancy [Unknown]
  - Normal newborn [Unknown]
